FAERS Safety Report 6610362-2 (Version None)
Quarter: 2010Q1

REPORT INFORMATION
  Report Type: 
  Country: None (occurrence: None)
  Receive Date: 20100302
  Receipt Date: 20100222
  Transmission Date: 20100710
  Serious: Yes (Disabling)
  Sender: FDA-Public Use
  Company Number: US-BAYER-201014757NA

PATIENT
  Age: 8 Year
  Sex: Male

DRUGS (1)
  1. CIPRO [Suspect]
     Indication: URINARY TRACT INFECTION
     Dates: start: 20100201

REACTIONS (6)
  - ABASIA [None]
  - APRAXIA [None]
  - MYOCLONUS [None]
  - NYSTAGMUS [None]
  - RASH [None]
  - URINARY RETENTION [None]
